FAERS Safety Report 23900217 (Version 2)
Quarter: 2025Q1

REPORT INFORMATION
  Report Type: Spontaneous
  Country: US (occurrence: US)
  Receive Date: 20240526
  Receipt Date: 20250226
  Transmission Date: 20250409
  Serious: No
  Sender: ROCHE
  Company Number: US-ROCHE-3341572

PATIENT
  Sex: Male

DRUGS (1)
  1. OCREVUS [Suspect]
     Active Substance: OCRELIZUMAB
     Indication: Product used for unknown indication
     Route: 065

REACTIONS (7)
  - Mobility decreased [Unknown]
  - Muscle fatigue [Unknown]
  - Nerve injury [Unknown]
  - Muscular weakness [Unknown]
  - Burning sensation [Unknown]
  - Injury [Unknown]
  - Feeling hot [Unknown]
